FAERS Safety Report 4847984-5 (Version None)
Quarter: 2005Q4

REPORT INFORMATION
  Report Type: 
  Country: None (occurrence: None)
  Receive Date: 20051206
  Receipt Date: 20051206
  Transmission Date: 20060501
  Serious: Yes (Death)
  Sender: FDA-Public Use
  Company Number: None

PATIENT
  Age: 5 Day
  Sex: Male
  Weight: 3.7 kg

DRUGS (5)
  1. HEPARIN LOCK-FLUSH [Suspect]
     Dosage: 2 UNITS/ML IV
     Route: 042
     Dates: start: 20050914, end: 20050917
  2. CALCIUM CHLORIDE [Suspect]
     Indication: MINERAL SUPPLEMENTATION
     Dosage: 1000 MG IV DRIP
     Route: 041
     Dates: start: 20050915, end: 20050917
  3. PORCINE HEPARIN [Concomitant]
  4. PHOSPHATE [Concomitant]
  5. DIBASIC SODIUM PHOSPHATE [Concomitant]

REACTIONS (9)
  - BLOOD PRESSURE DECREASED [None]
  - CARDIO-RESPIRATORY ARREST [None]
  - EXTRAVASATION [None]
  - GENERAL PHYSICAL HEALTH DETERIORATION [None]
  - HAEMODYNAMIC INSTABILITY [None]
  - METABOLIC ACIDOSIS [None]
  - PHARMACEUTICAL PRODUCT COMPLAINT [None]
  - THERAPY NON-RESPONDER [None]
  - VENTRICULAR FIBRILLATION [None]
